FAERS Safety Report 10182856 (Version 2)
Quarter: 2014Q2

REPORT INFORMATION
  Report Type: Report from Study
  Country: NL (occurrence: NL)
  Receive Date: 20140520
  Receipt Date: 20140520
  Transmission Date: 20141212
  Serious: Yes (Death)
  Sender: FDA-Public Use
  Company Number: NL-ABBVIE-13P-114-1181594-00

PATIENT
  Age: 79 Year
  Sex: Male

DRUGS (2)
  1. LUCRIN [Suspect]
     Indication: PROSTATE CANCER
     Route: 058
     Dates: start: 20131221
  2. LUCRIN [Suspect]
     Indication: PROSTATE CANCER
     Route: 058
     Dates: start: 20121218, end: 20130521

REACTIONS (2)
  - Death [Fatal]
  - Prostatic specific antigen increased [Unknown]
